FAERS Safety Report 7959987-2 (Version None)
Quarter: 2011Q4

REPORT INFORMATION
  Report Type: 
  Country: None (occurrence: None)
  Receive Date: 20111206
  Receipt Date: 20111125
  Transmission Date: 20120403
  Serious: Yes (Other)
  Sender: FDA-Public Use
  Company Number: PHHY2011CA64139

PATIENT
  Sex: Female

DRUGS (1)
  1. AFINITOR [Suspect]
     Indication: PANCREATIC NEUROENDOCRINE TUMOUR
     Dosage: 10 MG, DAILY
     Route: 048
     Dates: start: 20110711, end: 20110906

REACTIONS (16)
  - NEOPLASM [None]
  - PERIPHERAL COLDNESS [None]
  - LIMB DISCOMFORT [None]
  - TREMOR [None]
  - PARAESTHESIA [None]
  - DYSPNOEA [None]
  - DYSPEPSIA [None]
  - WEIGHT DECREASED [None]
  - FATIGUE [None]
  - COUGH [None]
  - PAIN IN EXTREMITY [None]
  - ARTHRALGIA [None]
  - MUSCULAR WEAKNESS [None]
  - CATARACT [None]
  - SPUTUM DISCOLOURED [None]
  - BURNING FEET SYNDROME [None]
